FAERS Safety Report 18226633 (Version 1)
Quarter: 2020Q3

REPORT INFORMATION
  Report Type: Spontaneous
  Country: JP (occurrence: JP)
  Receive Date: 20200903
  Receipt Date: 20200903
  Transmission Date: 20201103
  Serious: Yes (Hospitalization, Other)
  Sender: FDA-Public Use
  Company Number: JP-PFIZER INC-2020339804

PATIENT
  Age: 83 Year
  Sex: Female

DRUGS (12)
  1. ALPRAZOLAM. [Suspect]
     Active Substance: ALPRAZOLAM
     Indication: ANXIETY
     Dosage: 0.8 MG, DAILY
  2. FENTANYL. [Suspect]
     Active Substance: FENTANYL
     Dosage: 2 MG, DAILY (ON DAY 43)
     Route: 062
  3. VANCOMYCIN [Concomitant]
     Active Substance: VANCOMYCIN
     Indication: STAPHYLOCOCCAL INFECTION
     Dosage: 1 G, DAILY (ON DAY 39)
  4. ALPRAZOLAM. [Suspect]
     Active Substance: ALPRAZOLAM
     Indication: INSOMNIA
  5. CELECOXIB. [Concomitant]
     Active Substance: CELECOXIB
     Indication: CANCER PAIN
     Dosage: 400 MG, DAILY (ON DAY 5)
  6. MEROPENEM. [Concomitant]
     Active Substance: MEROPENEM
     Indication: STAPHYLOCOCCAL INFECTION
     Dosage: 1 G, DAILY (ON DAY 49)
  7. ZOPICLONE [Suspect]
     Active Substance: ZOPICLONE
     Indication: ANXIETY
     Dosage: 10 MG, DAILY
  8. ACETAMINOPHEN. [Concomitant]
     Active Substance: ACETAMINOPHEN
     Indication: CANCER PAIN
     Dosage: 1600 MG, DAILY
  9. ZOPICLONE [Suspect]
     Active Substance: ZOPICLONE
     Indication: INSOMNIA
  10. FENTANYL. [Suspect]
     Active Substance: FENTANYL
     Indication: CANCER PAIN
     Dosage: 1 MG, DAILY (ON DAY 13)
     Route: 062
  11. LOXOPROFEN [Concomitant]
     Active Substance: LOXOPROFEN
     Indication: CANCER PAIN
     Dosage: 180 MG, DAILY
  12. FENTANYL. [Suspect]
     Active Substance: FENTANYL
     Dosage: 3 MG, DAILY (ON DAY 51)
     Route: 062

REACTIONS (5)
  - Condition aggravated [Recovering/Resolving]
  - Toxicity to various agents [Recovering/Resolving]
  - Agitation [Recovering/Resolving]
  - Somnolence [Recovering/Resolving]
  - Aggression [Recovering/Resolving]
